FAERS Safety Report 14872726 (Version 2)
Quarter: 2019Q2

REPORT INFORMATION
  Report Type: Spontaneous
  Country: CA (occurrence: CA)
  Receive Date: 20180510
  Receipt Date: 20190628
  Transmission Date: 20190711
  Serious: Yes (Death)
  Sender: FDA-Public Use
  Company Number: CA-BAUSCH-BL-2018-013302

PATIENT
  Age: 28 Year
  Sex: Female

DRUGS (4)
  1. HEXETIDINE [Suspect]
     Active Substance: HEXETIDINE
     Indication: SUICIDE ATTEMPT
     Route: 065
  2. CLINDAMYCIN. [Suspect]
     Active Substance: CLINDAMYCIN
     Indication: SUICIDE ATTEMPT
     Route: 065
  3. PARACETAMOL [Suspect]
     Active Substance: ACETAMINOPHEN
     Indication: SUICIDE ATTEMPT
     Route: 065
  4. WELLBUTRIN [Suspect]
     Active Substance: BUPROPION HYDROCHLORIDE
     Indication: SUICIDE ATTEMPT
     Dosage: THREE EMPTY BOXES OF 30 SLOW-RELEASE TABLETS OF BUPROPION 300MG WERE FOUND ON A NIGHT-STAND.
     Route: 048

REACTIONS (4)
  - Completed suicide [Fatal]
  - Toxicity to various agents [Fatal]
  - Overdose [Fatal]
  - Bezoar [Fatal]
